FAERS Safety Report 8277397-8 (Version None)
Quarter: 2012Q2

REPORT INFORMATION
  Report Type: 
  Country: None (occurrence: None)
  Receive Date: 20120412
  Receipt Date: 20120404
  Transmission Date: 20120825
  Serious: Yes (Hospitalization, Other)
  Sender: FDA-Public Use
  Company Number: US-BAYER-2011-113004

PATIENT
  Age: 21 Year
  Sex: Female
  Weight: 52.154 kg

DRUGS (3)
  1. MULTI-VITAMINS [Concomitant]
     Dosage: DAILY
  2. YASMIN [Suspect]
     Dosage: UNK
     Dates: start: 20070101, end: 20090101
  3. ZANTAC [Concomitant]
     Dosage: UNK UNK, PRN

REACTIONS (3)
  - PAIN [None]
  - CHOLECYSTITIS ACUTE [None]
  - GALLBLADDER INJURY [None]
